FAERS Safety Report 9280960 (Version 1)
Quarter: 2013Q2

REPORT INFORMATION
  Report Type: Spontaneous
  Country: US (occurrence: US)
  Receive Date: 20130509
  Receipt Date: 20130509
  Transmission Date: 20140414
  Serious: Yes (Death, Hospitalization)
  Sender: FDA-Public Use
  Company Number: US-ROXANE LABORATORIES, INC.-2013-BI-06262GD

PATIENT
  Age: 89 Year
  Sex: Male

DRUGS (10)
  1. PREDNISONE [Suspect]
     Indication: POLYMYALGIA RHEUMATICA
     Dosage: HIGH DOSE; FLUCTUATING BETWEEN 10 AND 20 MG
  2. PREDNISONE [Suspect]
     Indication: TEMPORAL ARTERITIS
  3. FUROSEMIDE [Concomitant]
     Dosage: 20 MG
  4. AMIODARONE [Concomitant]
     Dosage: 200 MG
  5. LEVOTHYROXINE [Concomitant]
     Indication: HYPOTHYROIDISM
     Dosage: 50 MCG
  6. ALENDRONATE [Concomitant]
     Dosage: 10 MG
  7. ESZOPICLONE [Concomitant]
     Dosage: 1 MG
  8. LOSARTAN [Concomitant]
     Dosage: 50 MG
  9. WARFARIN [Concomitant]
  10. SEDATIVE-HYPNOTIC [Concomitant]
     Indication: INITIAL INSOMNIA

REACTIONS (7)
  - Nocardiosis [Fatal]
  - Pyrexia [Unknown]
  - Asthenia [Unknown]
  - Fatigue [Unknown]
  - Confusional state [Unknown]
  - Lobar pneumonia [Unknown]
  - Urinary incontinence [Unknown]
